FAERS Safety Report 5449729-7 (Version None)
Quarter: 2007Q3

REPORT INFORMATION
  Report Type: 
  Country: None (occurrence: None)
  Receive Date: 20070910
  Receipt Date: 20070828
  Transmission Date: 20080115
  Serious: Yes (Death, Hospitalization)
  Sender: FDA-Public Use
  Company Number: 2006P1000048

PATIENT
  Age: 74 Year
  Sex: Male
  Weight: 85 kg

DRUGS (15)
  1. PLACEBO (PLACEBO) [Suspect]
     Indication: ACUTE MYOCARDIAL INFARCTION
     Dosage: 5 IU;BID;IV; 0.25 MG/KG;X1;IV
     Route: 042
     Dates: start: 20050929, end: 20050929
  2. PLACEBO (PLACEBO) [Suspect]
     Indication: ACUTE MYOCARDIAL INFARCTION
     Dosage: 5 IU;BID;IV; 0.25 MG/KG;X1;IV
     Route: 042
     Dates: start: 20050929, end: 20050929
  3. ABCIXIMAB (ABCIXIMAB) [Suspect]
     Indication: ACUTE MYOCARDIAL INFARCTION
     Dosage: 10.6 MG;X1;IV; 204 MG;X1;IV
     Route: 042
     Dates: start: 20050925, end: 20050929
  4. ABCIXIMAB (ABCIXIMAB) [Suspect]
     Indication: ACUTE MYOCARDIAL INFARCTION
     Dosage: 10.6 MG;X1;IV; 204 MG;X1;IV
     Route: 042
     Dates: start: 20050929, end: 20050929
  5. CLOPIDOGREL [Concomitant]
  6. ASPIRIN [Concomitant]
  7. CARVEDILOL [Concomitant]
  8. SPIRAPRIL [Concomitant]
  9. DIGOXIN [Concomitant]
  10. FUROSEMIDE [Concomitant]
  11. ATORVASTATIN CALCIUM [Concomitant]
  12. SPIRONOLACTONE [Concomitant]
  13. OMEPRAZOLE [Concomitant]
  14. MIDAZOLAM HCL [Concomitant]
  15. SUXAMETHONIUM CHLORIDE [Concomitant]

REACTIONS (17)
  - ATRIOVENTRICULAR BLOCK COMPLETE [None]
  - CARDIAC FAILURE [None]
  - CYANOSIS [None]
  - ELECTROMECHANICAL DISSOCIATION [None]
  - HYPOTENSION [None]
  - INDURATION [None]
  - LIVER INDURATION [None]
  - MYOCARDIAL INFARCTION [None]
  - NEPHROSCLEROSIS [None]
  - OEDEMA [None]
  - PERICARDIAL FIBROSIS [None]
  - PULMONARY OEDEMA [None]
  - RENAL DISORDER [None]
  - SCAR [None]
  - SPLEEN DISORDER [None]
  - SPLENOMEGALY [None]
  - VENOUS INJURY [None]
